FAERS Safety Report 10679984 (Version 2)
Quarter: 2015Q1

REPORT INFORMATION
  Report Type: Spontaneous
  Country: US (occurrence: US)
  Receive Date: 20141229
  Receipt Date: 20150213
  Transmission Date: 20150720
  Serious: Yes (Other)
  Sender: FDA-Public Use
  Company Number: US-ASTELLAS-2014US020730

PATIENT
  Sex: Female

DRUGS (1)
  1. PROGRAF [Suspect]
     Active Substance: TACROLIMUS\TACROLIMUS ANHYDROUS
     Indication: LIVER TRANSPLANT REJECTION
     Route: 048
     Dates: start: 19901010

REACTIONS (3)
  - Bronchiectasis [Recovered/Resolved]
  - Asthma [Unknown]
  - Hepatic failure [Recovered/Resolved]

NARRATIVE: CASE EVENT DATE: 2011
